FAERS Safety Report 7429106-X (Version None)
Quarter: 2011Q2

REPORT INFORMATION
  Report Type: 
  Country: None (occurrence: None)
  Receive Date: 20110421
  Receipt Date: 20110413
  Transmission Date: 20111010
  Serious: Yes (Hospitalization, Other)
  Sender: FDA-Public Use
  Company Number: PHHO2011FR06575

PATIENT
  Sex: Male
  Weight: 86 kg

DRUGS (5)
  1. NEORAL [Suspect]
     Indication: RENAL TRANSPLANT
     Dosage: 550 MG, UNK
     Route: 048
     Dates: start: 20101218
  2. SOLUPRED [Suspect]
     Indication: RENAL TRANSPLANT
     Dosage: 5 MG
     Route: 048
     Dates: start: 20101218
  3. NO TREATMENT RECEIVED [Suspect]
  4. LASIX [Concomitant]
  5. CELLCEPT [Suspect]
     Indication: RENAL TRANSPLANT
     Dosage: 3 G, DAILY
     Route: 048
     Dates: start: 20101218

REACTIONS (3)
  - ANAEMIA [None]
  - GAIT DISTURBANCE [None]
  - BLOOD CREATININE INCREASED [None]
